FAERS Safety Report 10402620 (Version 3)
Quarter: 2015Q2

REPORT INFORMATION
  Report Type: Spontaneous
  Country: US (occurrence: US)
  Receive Date: 20140822
  Receipt Date: 20150409
  Transmission Date: 20150821
  Serious: Yes (Death, Hospitalization, Other)
  Sender: FDA-Public Use
  Company Number: US-009507513-1408USA012149

PATIENT
  Sex: Male
  Weight: 74.38 kg

DRUGS (5)
  1. JANUVIA [Suspect]
     Active Substance: SITAGLIPTIN PHOSPHATE
     Dosage: UNK
     Route: 048
     Dates: end: 20111220
  2. JANUMET [Suspect]
     Active Substance: METFORMIN HYDROCHLORIDE\SITAGLIPTIN PHOSPHATE
     Dosage: 50/1000 MG BID
     Route: 048
     Dates: start: 20091215, end: 201207
  3. JANUMET [Suspect]
     Active Substance: METFORMIN HYDROCHLORIDE\SITAGLIPTIN PHOSPHATE
     Indication: TYPE 2 DIABETES MELLITUS
     Dosage: 50/500 MG BID
     Route: 048
     Dates: start: 20090515, end: 20090808
  4. JANUMET [Suspect]
     Active Substance: METFORMIN HYDROCHLORIDE\SITAGLIPTIN PHOSPHATE
     Dosage: 50/500 MG BID
     Route: 048
     Dates: start: 200912, end: 201208
  5. JANUMET [Suspect]
     Active Substance: METFORMIN HYDROCHLORIDE\SITAGLIPTIN PHOSPHATE
     Dosage: 50/1000MG Q AM
     Route: 048

REACTIONS (32)
  - Metastases to liver [Unknown]
  - Metastases to peritoneum [Unknown]
  - Lymphadenopathy [Unknown]
  - Inguinal hernia [Unknown]
  - Erosive oesophagitis [Unknown]
  - Pleural effusion [Unknown]
  - Ascites [Unknown]
  - Osteonecrosis [Unknown]
  - Chronic kidney disease [Not Recovered/Not Resolved]
  - Pleural fibrosis [Unknown]
  - Prostatomegaly [Unknown]
  - Hepatic cirrhosis [Unknown]
  - Splenic vein thrombosis [Unknown]
  - Dehydration [Unknown]
  - Biopsy liver [Unknown]
  - Deafness [Unknown]
  - Atelectasis [Unknown]
  - Intervertebral disc disorder [Unknown]
  - Intestinal obstruction [Unknown]
  - Urinary tract infection [Unknown]
  - Pancreatic carcinoma metastatic [Fatal]
  - Cardio-respiratory arrest [Fatal]
  - Diverticulum intestinal [Unknown]
  - Gastric varices [Unknown]
  - Lymphadenopathy [Unknown]
  - Angioplasty [Unknown]
  - Retroperitoneal lymphadenopathy [Unknown]
  - Drug administration error [Unknown]
  - Hypertension [Unknown]
  - Aortic arteriosclerosis [Unknown]
  - Osteopenia [Unknown]
  - Hiccups [Unknown]

NARRATIVE: CASE EVENT DATE: 2009
